FAERS Safety Report 17791632 (Version 1)
Quarter: 2020Q2

REPORT INFORMATION
  Report Type: Spontaneous
  Country: ES (occurrence: ES)
  Receive Date: 20200515
  Receipt Date: 20200515
  Transmission Date: 20200714
  Serious: Yes (Death)
  Sender: FDA-Public Use
  Company Number: ES-ACCORD-181946

PATIENT
  Age: 86 Year
  Sex: Male
  Weight: 58 kg

DRUGS (2)
  1. RISPERIDONE. [Suspect]
     Active Substance: RISPERIDONE
     Indication: DEMENTIA
     Dosage: 3 MG
     Route: 048
     Dates: start: 20191111
  2. QUETIAPINE. [Suspect]
     Active Substance: QUETIAPINE
     Indication: DEMENTIA
     Dosage: 150MG Y 50MG
     Route: 048
     Dates: start: 20191111

REACTIONS (1)
  - Blood creatinine increased [Fatal]

NARRATIVE: CASE EVENT DATE: 20191111
